FAERS Safety Report 9547359 (Version 1)
Quarter: 2013Q2

REPORT INFORMATION
  Report Type: Spontaneous
  Country: US (occurrence: None)
  Receive Date: 20130606
  Receipt Date: 20130606
  Transmission Date: 20140414
  Serious: No
  Sender: FDA-Public Use
  Company Number: 2013PROUSA02599

PATIENT
  Age: 67 Year
  Sex: Male
  Weight: 121.5 kg

DRUGS (10)
  1. PROVENGE (SIPULEUCEL-T) SUSPENSION, 250ML [Suspect]
     Indication: PROSTATE CANCER METASTATIC
     Route: 042
     Dates: start: 20130222, end: 20130222
  2. CALCIUM CARBONATE AND VITAMIN D (CALCIUM CARBONATE, COLECALCIFEROL) [Concomitant]
  3. COD LIVER OIL (COD LIVER OIL) [Concomitant]
  4. ZOFRAN (ONDANSETRON HYDROCHLORIDE) [Concomitant]
  5. OXYCODONE HYDROCHLORIDE AND IBUPROFEN (IBUPROFEN, OXYCODONE HYDROCHLORIDE) T; [Concomitant]
  6. HEPARIN LOCK FLUSH (HEPARIN SODIUM) [Concomitant]
  7. EFFEXOR (VENLAFAXINE HYDROCHLORIDE) UNKNOWN [Concomitant]
  8. ENZALUTAMIDE [Concomitant]
  9. LUPRON DEPOT (LEUPRORELIN ACETATE) [Concomitant]
  10. XGEVA (DENOSUMAB) [Concomitant]

REACTIONS (5)
  - Expired drug administered [None]
  - Underdose [None]
  - Headache [None]
  - Hypertension [None]
  - Back pain [None]
